FAERS Safety Report 4656491-4 (Version None)
Quarter: 2005Q2

REPORT INFORMATION
  Report Type: 
  Country: None (occurrence: None)
  Receive Date: 20050505
  Receipt Date: 20050422
  Transmission Date: 20051028
  Serious: Yes (Other)
  Sender: FDA-Public Use
  Company Number: 2005064661

PATIENT
  Age: 28 Year
  Sex: Male

DRUGS (1)
  1. MAGNEX (SULBACTAM, CEFOPERAZONE_) [Suspect]
     Indication: PROPHYLAXIS
     Dosage: 2 GRAM (1 GRAM, 2 IN 1 D)

REACTIONS (2)
  - BONE MARROW DEPRESSION [None]
  - OPERATIVE HAEMORRHAGE [None]
